FAERS Safety Report 7079873-2 (Version None)
Quarter: 2010Q4

REPORT INFORMATION
  Report Type: 
  Country: None (occurrence: None)
  Receive Date: 20101102
  Receipt Date: 20101026
  Transmission Date: 20110411
  Serious: Yes (Hospitalization)
  Sender: FDA-Public Use
  Company Number: BR-SANOFI-AVENTIS-2010SA065747

PATIENT
  Age: 60 Year
  Sex: Female
  Weight: 69 kg

DRUGS (5)
  1. LANTUS [Suspect]
     Route: 058
     Dates: start: 20091101
  2. WARFARIN [Concomitant]
     Dosage: ^1 TAB ONE DAY AND HALF TAB IN THE OTHER DAY^
     Route: 048
     Dates: start: 20080101
  3. METOPROLOL SUCCINATE [Concomitant]
     Route: 048
     Dates: start: 20080101
  4. HUMALOG [Concomitant]
     Dosage: 6 IU IN FASTING, 8 IU AT LUNCH AND 4 IU AT DINNER
     Route: 048
  5. METFORMIN [Concomitant]
     Route: 048

REACTIONS (5)
  - ARRHYTHMIA [None]
  - HEADACHE [None]
  - HYPERGLYCAEMIA [None]
  - SINUSITIS [None]
  - SLUGGISHNESS [None]
